FAERS Safety Report 8364569-7 (Version None)
Quarter: 2012Q2

REPORT INFORMATION
  Report Type: 
  Country: None (occurrence: None)
  Receive Date: 20120516
  Receipt Date: 20120503
  Transmission Date: 20120825
  Serious: Yes (Other)
  Sender: FDA-Public Use
  Company Number: US-ROCHE-1034505

PATIENT
  Sex: Female

DRUGS (6)
  1. AMOXICILLIN [Concomitant]
  2. MICROGESTIN 1.5/30 [Concomitant]
  3. LOESTRIN 1.5/30 [Concomitant]
  4. ACCUTANE [Suspect]
     Indication: PRODUCT USED FOR UNKNOWN INDICATION
     Dates: start: 19920828
  5. LOPROX [Concomitant]
  6. CLINDAMYCIN [Concomitant]

REACTIONS (4)
  - COLITIS ULCERATIVE [None]
  - ACNE [None]
  - ANXIETY [None]
  - INFLAMMATORY BOWEL DISEASE [None]
